FAERS Safety Report 5809479-1 (Version None)
Quarter: 2008Q3

REPORT INFORMATION
  Report Type: 
  Country: None (occurrence: None)
  Receive Date: 20080715
  Receipt Date: 20080713
  Transmission Date: 20090109
  Serious: Yes (Hospitalization)
  Sender: FDA-Public Use
  Company Number: KR-ABBOTT-08P-090-0461005-00

PATIENT
  Age: 51 Year
  Sex: Female

DRUGS (5)
  1. CLARITHROMYCIN [Suspect]
     Indication: MYCOBACTERIAL INFECTION
     Dosage: NOT REPORTED
  2. CLARITHROMYCIN [Suspect]
     Dosage: NOT REPORTED
  3. CEFOXITIN [Concomitant]
     Indication: MYCOBACTERIAL INFECTION
     Dosage: NOT REPORTED
  4. AMIKACIN [Concomitant]
     Indication: MYCOBACTERIAL INFECTION
     Dosage: NOT REPORTED
  5. CIPROFLOXACIN [Concomitant]
     Indication: MYCOBACTERIAL INFECTION
     Dosage: NOT REPORTED

REACTIONS (1)
  - LEUKOCYTOCLASTIC VASCULITIS [None]
